FAERS Safety Report 14544873 (Version 1)
Quarter: 2018Q1

REPORT INFORMATION
  Report Type: Spontaneous
  Country: US (occurrence: US)
  Receive Date: 20180217
  Receipt Date: 20180217
  Transmission Date: 20180509
  Serious: Yes (Other)
  Sender: FDA-Public Use
  Company Number: PHHY2018US025880

PATIENT
  Age: 62 Year
  Sex: Male

DRUGS (2)
  1. DABRAFENIB [Suspect]
     Active Substance: DABRAFENIB
     Indication: METASTATIC MALIGNANT MELANOMA
     Route: 065
  2. TRAMETINIB [Suspect]
     Active Substance: TRAMETINIB
     Indication: METASTATIC MALIGNANT MELANOMA
     Route: 065

REACTIONS (8)
  - Pyrexia [Unknown]
  - Macular oedema [Recovering/Resolving]
  - Rash [Unknown]
  - Vision blurred [Unknown]
  - Iritis [Unknown]
  - Keratic precipitates [Unknown]
  - Chills [Unknown]
  - Anterior chamber cell [Unknown]
